FAERS Safety Report 13288135 (Version 3)
Quarter: 2017Q1

REPORT INFORMATION
  Report Type: Spontaneous
  Country: FR (occurrence: FR)
  Receive Date: 20170302
  Receipt Date: 20170328
  Transmission Date: 20170428
  Serious: Yes (Hospitalization, Disabling)
  Sender: FDA-Public Use
  Company Number: FR-TAKEDA-2017MPI001749

PATIENT
  Age: 9 Decade
  Sex: Male

DRUGS (1)
  1. VELCADE [Suspect]
     Active Substance: BORTEZOMIB
     Indication: PLASMA CELL MYELOMA
     Dosage: 1.3 MG/M2, UNK
     Route: 058
     Dates: start: 201611

REACTIONS (1)
  - Testicular abscess [Recovered/Resolved with Sequelae]

NARRATIVE: CASE EVENT DATE: 201702
